FAERS Safety Report 12782093 (Version 1)
Quarter: 2016Q3

REPORT INFORMATION
  Report Type: Report from Study
  Country: US (occurrence: US)
  Receive Date: 20160927
  Receipt Date: 20160927
  Transmission Date: 20161109
  Serious: Yes (Other)
  Sender: FDA-Public Use
  Company Number: US-ROCHE-1833714

PATIENT
  Age: 51 Year
  Sex: Female
  Weight: 101.9 kg

DRUGS (3)
  1. BEVACIZUMAB [Suspect]
     Active Substance: BEVACIZUMAB
     Indication: ENDOMETRIAL CANCER
     Dosage: OVER 30-90 MINUTES ON DAY 1 EVERY 21 DAYS FOR 6 COURSES?ALSO RECEIVED ON 14/OCT/2010, 08/NOV/2010, 2
     Route: 042
     Dates: start: 20100914
  2. IXABEPILONE [Suspect]
     Active Substance: IXABEPILONE
     Indication: ENDOMETRIAL CANCER
     Dosage: OVER 1 HOUR ON DAY1 EVERY 21 DAYS FOR 6  COURSES?ALSO RECEIVED ON 14/OCT/2010, 08/NOV/2010, 29/NOV/2
     Route: 042
     Dates: start: 20100914
  3. CARBOPLATIN. [Suspect]
     Active Substance: CARBOPLATIN
     Indication: ENDOMETRIAL CANCER
     Dosage: OVER 30 MINUTES ON DAY1 EVERY 21 DAYS FOR 6 COURSES
     Route: 011

REACTIONS (5)
  - White blood cell count decreased [Unknown]
  - Fatigue [Unknown]
  - Syncope [Unknown]
  - Neutrophil count decreased [Unknown]
  - Urinary incontinence [Unknown]
